FAERS Safety Report 8559708-9 (Version None)
Quarter: 2012Q3

REPORT INFORMATION
  Report Type: 
  Country: None (occurrence: None)
  Receive Date: 20120802
  Receipt Date: 20120726
  Transmission Date: 20120928
  Serious: Yes (Other)
  Sender: FDA-Public Use
  Company Number: DE-PFIZER INC-2012182208

PATIENT
  Age: 69 Year
  Sex: Female

DRUGS (1)
  1. LYRICA [Suspect]
     Dosage: 370 MG, 1X/DAY

REACTIONS (4)
  - MUCOSAL HAEMORRHAGE [None]
  - COLITIS ULCERATIVE [None]
  - LEUKAEMIA [None]
  - SLEEP DISORDER [None]
